FAERS Safety Report 4864971-1 (Version None)
Quarter: 2005Q4

REPORT INFORMATION
  Report Type: 
  Country: None (occurrence: None)
  Receive Date: 20051223
  Receipt Date: 20051205
  Transmission Date: 20060501
  Serious: Yes (Other)
  Sender: FDA-Public Use
  Company Number: PHFR2005GB04026

PATIENT
  Age: 71 Year
  Sex: Female

DRUGS (2)
  1. ZOMETA [Suspect]
     Indication: MULTIPLE MYELOMA
     Dosage: 4 MG, QMO
     Route: 042
  2. CHEMOTHERAPEUTICS,OTHER [Concomitant]
     Indication: MULTIPLE MYELOMA

REACTIONS (1)
  - OSTEONECROSIS [None]
